FAERS Safety Report 8459288-2 (Version None)
Quarter: 2012Q2

REPORT INFORMATION
  Report Type: 
  Country: None (occurrence: None)
  Receive Date: 20120618
  Receipt Date: 20120606
  Transmission Date: 20120825
  Serious: Yes (Other)
  Sender: FDA-Public Use
  Company Number: 2012AP001754

PATIENT
  Age: 64 Year
  Sex: Female

DRUGS (6)
  1. NSAID'S [Concomitant]
  2. IMMUNOSUPPRESSANTS [Concomitant]
  3. CORTICOSTEROIDS [Concomitant]
  4. METHOTREXATE [Concomitant]
  5. MYCOPHENOLATE MOFETIL [Suspect]
     Indication: SCLERITIS
  6. CORTICOSTEROIDS [Concomitant]

REACTIONS (4)
  - OFF LABEL USE [None]
  - LEUKOPENIA [None]
  - ABDOMINAL DISCOMFORT [None]
  - LIVER FUNCTION TEST ABNORMAL [None]
